FAERS Safety Report 7105365-8 (Version None)
Quarter: 2010Q4

REPORT INFORMATION
  Report Type: 
  Country: None (occurrence: None)
  Receive Date: 20101116
  Receipt Date: 20101104
  Transmission Date: 20110411
  Serious: Yes (Other)
  Sender: FDA-Public Use
  Company Number: US-SANOFI-AVENTIS-2010SA067323

PATIENT
  Age: 83 Year

DRUGS (2)
  1. MULTAQ [Suspect]
     Route: 048
  2. LISINOPRIL [Concomitant]

REACTIONS (1)
  - BLOOD CREATININE INCREASED [None]
